FAERS Safety Report 7547522-2 (Version None)
Quarter: 2011Q2

REPORT INFORMATION
  Report Type: 
  Country: None (occurrence: None)
  Receive Date: 20110614
  Receipt Date: 20110612
  Transmission Date: 20111010
  Serious: No
  Sender: FDA-Public Use
  Company Number: US-PFIZER INC-2011128104

PATIENT
  Sex: Male
  Weight: 74.8 kg

DRUGS (9)
  1. VITAMIN B1 TAB [Concomitant]
     Dosage: UNK
  2. ACETYLSALICYLIC ACID [Concomitant]
     Dosage: UNK
  3. GLYBURIDE [Concomitant]
     Indication: DIABETES MELLITUS
     Dosage: UNK
  4. NICOTINIC ACID AMIDE [Concomitant]
     Dosage: UNK
  5. NEURONTIN [Suspect]
     Indication: NERVE INJURY
     Dosage: 300 MG, 2X/DAY
     Route: 048
     Dates: start: 20090101
  6. SIMVASTATIN [Concomitant]
     Dosage: UNK
  7. BACLOFEN [Concomitant]
     Dosage: UNK
  8. SOTALOL [Concomitant]
     Dosage: UNK
  9. TIMOLOL [Concomitant]
     Dosage: UNK

REACTIONS (2)
  - CHEST PAIN [None]
  - ABDOMINAL DISCOMFORT [None]
